FAERS Safety Report 6111321-9 (Version None)
Quarter: 2009Q1

REPORT INFORMATION
  Report Type: 
  Country: None (occurrence: None)
  Receive Date: 20090311
  Receipt Date: 20090303
  Transmission Date: 20090719
  Serious: Yes (Life-Threatening, Hospitalization, Other)
  Sender: FDA-Public Use
  Company Number: US-ELI_LILLY_AND_COMPANY-US200802005230

PATIENT
  Sex: Male
  Weight: 94.331 kg

DRUGS (12)
  1. CYMBALTA [Suspect]
     Indication: BIPOLAR DISORDER
     Dosage: 20 MG, UNK
     Dates: start: 20050511
  2. CYMBALTA [Suspect]
     Dosage: 30 MG, DAILY (1/D)
  3. CYMBALTA [Suspect]
     Dosage: 30 MG, 2/D
     Dates: start: 20060223
  4. CYMBALTA [Suspect]
     Dosage: 40 MG, 2/D
  5. LAMICTAL [Concomitant]
     Dosage: 200 MG, UNK
  6. LAMICTAL [Concomitant]
     Dosage: 100 MG, 3/D
     Dates: start: 20060223
  7. HYDROCODONE BITARTRATE [Concomitant]
  8. PREVACID [Concomitant]
     Dosage: 30 MG, DAILY (1/D)
  9. DEPAKOTE ER [Concomitant]
     Dosage: 500 MG, UNK
  10. RETIN-A [Concomitant]
  11. LEXAPRO [Concomitant]
     Dosage: 20 MG, UNK
     Dates: start: 20040109
  12. BACITRACIN [Concomitant]
     Indication: BLISTER
     Dates: start: 20060516

REACTIONS (37)
  - AGITATION [None]
  - ALANINE AMINOTRANSFERASE INCREASED [None]
  - ANXIETY [None]
  - ASPARTATE AMINOTRANSFERASE INCREASED [None]
  - BLINDNESS UNILATERAL [None]
  - BLISTER [None]
  - BLOOD ALBUMIN DECREASED [None]
  - BLOOD BILIRUBIN INCREASED [None]
  - BLOOD GLUCOSE INCREASED [None]
  - BLOOD UREA DECREASED [None]
  - BURNS THIRD DEGREE [None]
  - COMA [None]
  - COORDINATION ABNORMAL [None]
  - CRYING [None]
  - DECREASED INTEREST [None]
  - DEPRESSION [None]
  - DRUG INEFFECTIVE [None]
  - ERYTHEMA [None]
  - GAIT DISTURBANCE [None]
  - HAEMOGLOBIN DECREASED [None]
  - HYPOTENSION [None]
  - INSOMNIA [None]
  - JOINT ANKYLOSIS [None]
  - MUSCLE TIGHTNESS [None]
  - MUSCULAR WEAKNESS [None]
  - PLATELET COUNT INCREASED [None]
  - PNEUMONIA KLEBSIELLA [None]
  - POST-TRAUMATIC STRESS DISORDER [None]
  - POSTURE ABNORMAL [None]
  - PRURITUS [None]
  - PSEUDOMONAS INFECTION [None]
  - RED BLOOD CELL COUNT DECREASED [None]
  - RESPIRATORY FAILURE [None]
  - RESPIRATORY FUME INHALATION DISORDER [None]
  - SUICIDAL IDEATION [None]
  - SUICIDE ATTEMPT [None]
  - WEIGHT DECREASED [None]
